FAERS Safety Report 5699118-5 (Version None)
Quarter: 2008Q2

REPORT INFORMATION
  Report Type: 
  Country: None (occurrence: None)
  Receive Date: 20080407
  Receipt Date: 20080407
  Transmission Date: 20081010
  Serious: Yes (Hospitalization)
  Sender: FDA-Public Use
  Company Number: None

PATIENT
  Age: 47 Year
  Sex: Male
  Weight: 117.9352 kg

DRUGS (1)
  1. TAMIFLU [Suspect]
     Indication: INFLUENZA
     Dosage: ONE TABLET 2X DAILY
     Dates: start: 20080313, end: 20080317

REACTIONS (7)
  - AGITATION [None]
  - CONVULSION [None]
  - COUGH [None]
  - DELIRIUM [None]
  - FAECAL INCONTINENCE [None]
  - LOSS OF CONSCIOUSNESS [None]
  - VOMITING [None]
